FAERS Safety Report 8122101-7 (Version None)
Quarter: 2012Q1

REPORT INFORMATION
  Report Type: 
  Country: None (occurrence: None)
  Receive Date: 20120208
  Receipt Date: 20120201
  Transmission Date: 20120608
  Serious: Yes (Hospitalization)
  Sender: FDA-Public Use
  Company Number: US-JNJFOC-20120202509

PATIENT
  Age: 66 Year
  Sex: Male

DRUGS (5)
  1. ZYPREXA [Concomitant]
     Route: 048
  2. RISPERDAL CONSTA [Suspect]
     Route: 030
     Dates: start: 20120101, end: 20120201
  3. LAMICTAL [Concomitant]
     Route: 048
  4. KLONOPIN [Concomitant]
     Dosage: 2MG TWICE A DAY
     Route: 048
  5. RISPERDAL CONSTA [Suspect]
     Indication: SCHIZOPHRENIA
     Route: 030
     Dates: end: 20120101

REACTIONS (8)
  - COMA [None]
  - CONFUSIONAL STATE [None]
  - INAPPROPRIATE SCHEDULE OF DRUG ADMINISTRATION [None]
  - DYSKINESIA [None]
  - BODY TEMPERATURE DECREASED [None]
  - HYPOTENSION [None]
  - AGITATION [None]
  - PNEUMONIA [None]
